FAERS Safety Report 13767956 (Version 1)
Quarter: 2017Q3

REPORT INFORMATION
  Report Type: Spontaneous
  Country: US (occurrence: US)
  Receive Date: 20170719
  Receipt Date: 20170719
  Transmission Date: 20171127
  Serious: No
  Sender: FDA-Public Use
  Company Number: US-PFIZER INC-2017310112

PATIENT
  Age: 84 Year
  Sex: Female

DRUGS (33)
  1. RISPERDAL [Concomitant]
     Active Substance: RISPERIDONE
     Indication: DEPRESSION
     Dosage: 0.25 MG, UNK (1-3 TABLETS QD)
     Route: 048
     Dates: start: 20161027
  2. OXYCONTIN [Concomitant]
     Active Substance: OXYCODONE HYDROCHLORIDE
     Dosage: 10 MG, 2X/DAY(12 HOUR ABUSE-DETERRENT) (1 TABLET (10 MG) BY MOUTH EVERY 12 HOURS)
     Route: 048
  3. COLACE [Concomitant]
     Active Substance: DOCUSATE SODIUM
     Dosage: 100 MG, AS NEEDED (TAKE 1 CAPSULE (100 MG) BY MOUTH 2 DAILY)
     Route: 048
     Dates: start: 20161027
  4. METOPROLOL TARTRATE. [Concomitant]
     Active Substance: METOPROLOL TARTRATE
     Dosage: 25 MG, 2X/DAY (WITH FOOD)
     Route: 048
     Dates: start: 20161027
  5. POTASSIUM CHLORIDE. [Concomitant]
     Active Substance: POTASSIUM CHLORIDE
     Dosage: 10 MEQ, DAILY
     Route: 048
     Dates: start: 20161027
  6. SENNA PLUS [Concomitant]
     Active Substance: DOCUSATE SODIUM\SENNOSIDES\SENNOSIDES A AND B
     Dosage: 1 DF, AS NEEDED [DOCUSATE SODIUM 50 MG]-[ SENNOSIDE A+B 8.6 MG] (1 TABLET ORALLY 2 TIMES A DAY)
     Route: 048
     Dates: start: 20161027
  7. TRIAMCINOLONE ACETONIDE. [Concomitant]
     Active Substance: TRIAMCINOLONE ACETONIDE
     Indication: PRURITUS
     Dosage: UNK, 2X/DAY (1 APPLICATION TOPICALLY TO AFFECTED AREA)
     Route: 061
  8. FERROUS SULFATE. [Concomitant]
     Active Substance: FERROUS SULFATE
     Dosage: 325 MG, 2X/DAY ((65 FE))
     Route: 048
     Dates: start: 20161027
  9. PANTOPRAZOLE SODIUM. [Concomitant]
     Active Substance: PANTOPRAZOLE SODIUM
     Dosage: 40 MG, DAILY
     Route: 048
     Dates: start: 20161027
  10. PROMETHAZINE HCL [Concomitant]
     Active Substance: PROMETHAZINE HYDROCHLORIDE
     Dosage: 25 MG, AS NEEDED (TAKE 1 TABLET (25 MG) BY MOUTH EVERY 8 HOURS)
     Route: 048
  11. TEMAZEPAM. [Concomitant]
     Active Substance: TEMAZEPAM
     Indication: DEPRESSION
     Dosage: 15 MG, AS NEEDED (1 CAPSULE (15 MG) BY MOUTH DAILY AT BEDTIME)
     Route: 048
     Dates: start: 20170627
  12. VITAMIN D [Concomitant]
     Active Substance: CHOLECALCIFEROL
     Dosage: 2000 IU, DAILY
     Route: 048
     Dates: start: 20161027
  13. ZOFRAN [Concomitant]
     Active Substance: ONDANSETRON HYDROCHLORIDE
     Dosage: 4 MG, AS NEEDED (1 TABLET (4 MG) ON THE TONGUE AND ALLOW TO DISSOLVE EVERY 6 HOURS)
     Route: 048
     Dates: start: 20161027
  14. EFFEXOR XR [Suspect]
     Active Substance: VENLAFAXINE HYDROCHLORIDE
     Indication: DEPRESSION
     Dosage: UNK
     Route: 048
     Dates: start: 20170508, end: 20170628
  15. BUDESONIDE. [Concomitant]
     Active Substance: BUDESONIDE
     Indication: RESTLESSNESS
     Dosage: 1 DF, 2X/DAY (DO NOT TAKE ON THE SAME DAY AS ADVAIR)
     Route: 055
     Dates: start: 20161027
  16. NYSTOP [Concomitant]
     Active Substance: NYSTATIN
     Indication: RASH
     Dosage: UNK UNK, AS NEEDED (APPLY UNDER BREASTS TWICE DAILY)
  17. EFFEXOR XR [Suspect]
     Active Substance: VENLAFAXINE HYDROCHLORIDE
     Dosage: 150 MG, 3X/DAY (WITH FOOD)
     Route: 048
     Dates: start: 20170629
  18. ADVAIR HFA [Concomitant]
     Active Substance: FLUTICASONE PROPIONATE\SALMETEROL XINAFOATE
     Indication: CHRONIC OBSTRUCTIVE PULMONARY DISEASE
     Dosage: 2 DF, 2X/DAY [FLUTICASONE PROPIONATE 115 MCG/ACT] - [SALMETEROL XINAFOATE 21 MCG/ACT]
     Route: 055
  19. ZYRTEC [Concomitant]
     Active Substance: CETIRIZINE HYDROCHLORIDE
     Dosage: 10 MG, DAILY
     Route: 048
  20. OXYCODONE HYDROCHLORIDE. [Concomitant]
     Active Substance: OXYCODONE HYDROCHLORIDE
     Indication: BACK PAIN
     Dosage: 15 MG, AS NEEDED (TAKE 1 TABLET (15 MG) BY MOUTH EVERY 6 HOURS)
     Route: 048
     Dates: start: 20170622
  21. VITAMIN C [Concomitant]
     Active Substance: ASCORBIC ACID
     Dosage: 1000 MG, DAILY
     Route: 048
     Dates: start: 20161027
  22. FLUCONAZOLE. [Concomitant]
     Active Substance: FLUCONAZOLE
     Dosage: 150 MG, 1X/DAY
     Route: 048
  23. HYOSCYAMINE SULFATE. [Concomitant]
     Active Substance: HYOSCYAMINE SULFATE
     Dosage: 0.125 MG/ML, AS NEEDED  (EVERY 4 HOURS BEFORE MEALS)
     Route: 048
     Dates: start: 20161027
  24. DIAZEPAM. [Concomitant]
     Active Substance: DIAZEPAM
     Indication: DEPRESSION
     Dosage: UNK UNK, AS NEEDED (1-2 TABS Q 8HRS)
     Route: 048
     Dates: start: 20170321
  25. OXYCONTIN [Concomitant]
     Active Substance: OXYCODONE HYDROCHLORIDE
     Dosage: UNK
     Dates: start: 20170209, end: 20170524
  26. CRANBERRY. [Concomitant]
     Active Substance: CRANBERRY
     Dosage: 450 MG, DAILY
     Route: 048
     Dates: start: 20161027
  27. FLONASE [Concomitant]
     Active Substance: FLUTICASONE PROPIONATE
     Dosage: 2 DF, DAILY (50 MCG/ACT, 2 SPRAYS INTRANASALLY DAILY IN EACH NOSTRIL)
     Route: 045
  28. PERFOROMIST [Concomitant]
     Active Substance: FORMOTEROL FUMARATE DIHYDRATE
     Indication: RESPIRATORY DISTRESS
     Dosage: UNK (1 VIAL 2 TIMES A DAY INHAL), (DO NOT TAKE WITH XOPENEX)
     Route: 055
  29. CALMOSEPTINE [Concomitant]
     Active Substance: MENTHOL\ZINC OXIDE
     Dosage: UNK [MENTHOL 0.44 %]-[ZINC OXIDE 20.6%]
  30. AMLODIPINE [Concomitant]
     Active Substance: AMLODIPINE BESYLATE
     Dosage: 5 MG, DAILY, (TAKE 1 TABLET (5 MG) BY MOUTH DAILY 11/15 EXTRA DOSE GIVEN 1630 DURING ENCOUNTER)
     Route: 048
     Dates: start: 20161027
  31. FOLBEE [Concomitant]
     Active Substance: CYANOCOBALAMIN\FOLIC ACID\PYRIDOXINE HYDROCHLORIDE
     Dosage: 1 DF, DAILY[FOLIC ACID- 2.5 MG]-[ VITAMIN B6- 25MG]-[VITAMIN B12- 1MG]
     Route: 048
  32. XOPENEX HFA [Concomitant]
     Active Substance: LEVALBUTEROL TARTRATE
     Dosage: 2 DF, AS NEEDED (EVERY 6 HOURS AS NEEDED, DO NOT TAKE WITH PERFOROMIST)
  33. MIRALAX [Concomitant]
     Active Substance: POLYETHYLENE GLYCOL 3350
     Dosage: 17 G, AS NEEDED (TAKE 1 PACKET (17 GRAMS) BY MOUTH DAILY MIXED WITH 8 OUNCES OF FLUID)
     Route: 048
     Dates: start: 20161027

REACTIONS (3)
  - Liver function test increased [Unknown]
  - Prescribed overdose [Unknown]
  - Emotional disorder [Unknown]
